FAERS Safety Report 8098235-2 (Version None)
Quarter: 2012Q1

REPORT INFORMATION
  Report Type: 
  Country: None (occurrence: None)
  Receive Date: 20120128
  Receipt Date: 20110719
  Transmission Date: 20120608
  Serious: No
  Sender: FDA-Public Use
  Company Number: US-ABBOTT-11P-163-0840134-00

PATIENT
  Sex: Male

DRUGS (7)
  1. HUMIRA [Suspect]
     Indication: PSORIASIS
     Dates: start: 20030101, end: 20110501
  2. PROTOPIC [Concomitant]
     Indication: FUNGAL INFECTION
     Dosage: 1 IN 1 DAY: USED IN THE MORNING ONLY
     Dates: start: 20110501
  3. DOVONEX [Concomitant]
     Indication: PSORIASIS
  4. HUMIRA [Suspect]
     Indication: PSORIATIC ARTHROPATHY
     Route: 058
     Dates: start: 20110501, end: 20110701
  5. HUMIRA [Suspect]
     Route: 058
     Dates: start: 20110701
  6. CLOBETASOL PROPIONATE [Concomitant]
     Indication: PSORIASIS
  7. PROTOPIC [Concomitant]
     Indication: PSORIASIS

REACTIONS (7)
  - ASTHMA [None]
  - DRUG INEFFECTIVE [None]
  - WHEEZING [None]
  - DYSPNOEA [None]
  - PSORIASIS [None]
  - NOSOPHOBIA [None]
  - FUNGAL INFECTION [None]
